FAERS Safety Report 20317758 (Version 1)
Quarter: 2022Q1

REPORT INFORMATION
  Report Type: Spontaneous
  Country: CN (occurrence: CN)
  Receive Date: 20220110
  Receipt Date: 20220110
  Transmission Date: 20220423
  Serious: Yes (Other)
  Sender: FDA-Public Use
  Company Number: CN-BAYER-2022A003133

PATIENT
  Age: 66 Year
  Sex: Male
  Weight: 84 kg

DRUGS (3)
  1. IOPROMIDE [Suspect]
     Active Substance: IOPROMIDE
     Indication: Angiocardiogram
     Dosage: 150 ML, ONCE, ARTERY INTRATHECAL INJECTION
     Route: 050
     Dates: start: 20211215, end: 20211215
  2. IOPROMIDE [Suspect]
     Active Substance: IOPROMIDE
     Indication: Angina unstable
  3. IOPROMIDE [Suspect]
     Active Substance: IOPROMIDE
     Indication: Percutaneous coronary intervention

REACTIONS (8)
  - Contrast encephalopathy [Recovering/Resolving]
  - Vomiting [None]
  - Nausea [None]
  - Dizziness [Recovering/Resolving]
  - Vision blurred [Recovering/Resolving]
  - Restlessness [Recovering/Resolving]
  - Off label use [None]
  - Contraindicated product administered [None]

NARRATIVE: CASE EVENT DATE: 20211215
